FAERS Safety Report 9298899 (Version 1)
Quarter: 2013Q2

REPORT INFORMATION
  Report Type: Spontaneous
  Country: US (occurrence: US)
  Receive Date: 20130520
  Receipt Date: 20130520
  Transmission Date: 20140414
  Serious: No
  Sender: FDA-Public Use
  Company Number: US-SANOFI-AVENTIS-2012SA051705

PATIENT
  Age: 43 Year
  Sex: Male
  Weight: 78 kg

DRUGS (2)
  1. APIDRA [Suspect]
     Indication: TYPE 1 DIABETES MELLITUS
     Dosage: DOSE IS REPORTED AS 2-10 UNITS VIA PUMP AND INJECTIONS
     Route: 058
     Dates: start: 20111230, end: 20120622
  2. HUMALOG [Concomitant]
     Indication: TYPE 1 DIABETES MELLITUS

REACTIONS (5)
  - Urticaria [Recovered/Resolved]
  - Chest pain [Recovered/Resolved]
  - Blood glucose abnormal [Recovered/Resolved]
  - Injection site pain [Recovered/Resolved]
  - Injection site inflammation [Recovered/Resolved]
